FAERS Safety Report 8468128-7 (Version None)
Quarter: 2012Q2

REPORT INFORMATION
  Report Type: 
  Country: None (occurrence: None)
  Receive Date: 20120626
  Receipt Date: 20120614
  Transmission Date: 20120825
  Serious: Yes (Other)
  Sender: FDA-Public Use
  Company Number: BR-ROCHE-1078909

PATIENT
  Sex: Female
  Weight: 60 kg

DRUGS (16)
  1. ACTEMRA [Suspect]
     Route: 042
     Dates: start: 20110201
  2. METICORTEN [Concomitant]
  3. METFORMIN HCL [Concomitant]
  4. ACTEMRA [Suspect]
     Route: 042
     Dates: start: 20110401
  5. ACTEMRA [Suspect]
     Route: 042
     Dates: start: 20110701
  6. METOPROLOL SUCCINATE [Concomitant]
  7. ACTEMRA [Suspect]
     Route: 042
     Dates: start: 20110601
  8. ACTEMRA [Suspect]
     Route: 042
     Dates: start: 20111201, end: 20111201
  9. ACTEMRA [Suspect]
     Route: 042
     Dates: start: 20110501
  10. ACTEMRA [Suspect]
     Route: 042
     Dates: start: 20110301
  11. ACTEMRA [Suspect]
     Route: 042
     Dates: start: 20110801
  12. ACTEMRA [Suspect]
     Route: 042
     Dates: start: 20110901
  13. ACTEMRA [Suspect]
     Route: 042
     Dates: start: 20111001
  14. ACTEMRA [Suspect]
     Indication: RHEUMATOID ARTHRITIS
     Route: 042
     Dates: start: 20101101
  15. DIAMICRON [Concomitant]
  16. ACTEMRA [Suspect]
     Route: 042
     Dates: start: 20111101

REACTIONS (5)
  - NASOPHARYNGITIS [None]
  - INFECTION [None]
  - THERAPEUTIC RESPONSE DECREASED [None]
  - DEMYELINATION [None]
  - IMMUNODEFICIENCY [None]
